FAERS Safety Report 21005350 (Version 1)
Quarter: 2022Q2

REPORT INFORMATION
  Report Type: Spontaneous
  Country: CN (occurrence: CN)
  Receive Date: 20220624
  Receipt Date: 20220624
  Transmission Date: 20220721
  Serious: Yes (Hospitalization, Other)
  Sender: FDA-Public Use
  Company Number: CN-Accord-267312

PATIENT
  Age: 61 Year
  Sex: Male

DRUGS (3)
  1. MYCOPHENOLATE MOFETIL [Suspect]
     Active Substance: MYCOPHENOLATE MOFETIL
     Indication: Transplant rejection
     Dosage: 720 MG EVERY 12 HOURS
     Dates: start: 201812
  2. TACROLIMUS [Suspect]
     Active Substance: TACROLIMUS
     Indication: Transplant rejection
     Dosage: 25MG EVERY 12 HOURS
     Dates: start: 201812
  3. PREDNISONE [Suspect]
     Active Substance: PREDNISONE
     Indication: Transplant rejection
     Dosage: 10 MG ONCE A DAY
     Dates: start: 201812

REACTIONS (4)
  - Penicillium infection [Recovering/Resolving]
  - Pseudomonas infection [Unknown]
  - Infection reactivation [Unknown]
  - Candida infection [Unknown]
